FAERS Safety Report 7235468-9 (Version None)
Quarter: 2011Q1

REPORT INFORMATION
  Report Type: 
  Country: None (occurrence: None)
  Receive Date: 20110114
  Receipt Date: 20110114
  Transmission Date: 20110831
  Serious: Yes (Other)
  Sender: FDA-Public Use
  Company Number: None

PATIENT
  Age: 69 Year
  Sex: Female
  Weight: 74.8435 kg

DRUGS (2)
  1. CYMBALTA [Suspect]
     Indication: PAIN
     Dosage: ONE CAPSULE PER DAY SL
     Route: 060
     Dates: start: 20101110, end: 20101110
  2. CYMBALTA [Suspect]
     Indication: DEPRESSION
     Dosage: ONE CAPSULE PER DAY SL
     Route: 060
     Dates: start: 20101110, end: 20101110

REACTIONS (4)
  - SOMNOLENCE [None]
  - DYSPHAGIA [None]
  - HALLUCINATION [None]
  - GAIT DISTURBANCE [None]
